FAERS Safety Report 25890457 (Version 2)
Quarter: 2025Q4

REPORT INFORMATION
  Report Type: Spontaneous
  Country: JP (occurrence: JP)
  Receive Date: 20251007
  Receipt Date: 20251128
  Transmission Date: 20260118
  Serious: Yes (Other)
  Sender: PFIZER
  Company Number: JP-ONO-2025JP017908

PATIENT
  Age: 5 Decade
  Sex: Male

DRUGS (4)
  1. BRAFTOVI [Suspect]
     Active Substance: ENCORAFENIB
     Indication: Malignant melanoma
     Dosage: UNK, CONVENTIONAL DOSE
     Route: 048
  2. MEKTOVI [Suspect]
     Active Substance: BINIMETINIB
     Indication: Malignant melanoma
     Dosage: UNK, CONVENTIONAL DOSE
     Route: 048
  3. OPDIVO [Suspect]
     Active Substance: NIVOLUMAB
     Indication: Malignant melanoma
     Dosage: UNK
     Route: 041
  4. YERVOY [Suspect]
     Active Substance: IPILIMUMAB
     Indication: Malignant melanoma
     Dosage: UNK
     Route: 041

REACTIONS (16)
  - Renal infarct [Recovering/Resolving]
  - Metastases to liver [Recovering/Resolving]
  - Metastases to lymph nodes [Recovering/Resolving]
  - Gastrointestinal oedema [Unknown]
  - Immune-mediated arthritis [Unknown]
  - Neuropathy peripheral [Unknown]
  - Enterocolitis [Unknown]
  - Lambl^s excrescences [Recovering/Resolving]
  - Oedema due to hepatic disease [Unknown]
  - Movement disorder [Unknown]
  - Joint effusion [Unknown]
  - Generalised oedema [Unknown]
  - Oedema peripheral [Unknown]
  - Abdominal pain [Unknown]
  - Blood creatine phosphokinase increased [Unknown]
  - Pyrexia [Unknown]

NARRATIVE: CASE EVENT DATE: 20250510
